FAERS Safety Report 24869305 (Version 1)
Quarter: 2025Q1

REPORT INFORMATION
  Report Type: Spontaneous
  Country: FR (occurrence: FR)
  Receive Date: 20250121
  Receipt Date: 20250121
  Transmission Date: 20250408
  Serious: Yes (Other)
  Sender: AMNEAL
  Company Number: FR-AMNEAL PHARMACEUTICALS-2025-AMRX-00084

PATIENT
  Age: 44 Year
  Sex: Female

DRUGS (1)
  1. METHYLPHENIDATE HYDROCHLORIDE [Suspect]
     Active Substance: METHYLPHENIDATE HYDROCHLORIDE
     Indication: Attention deficit hyperactivity disorder
     Dosage: 54 MG; 2X/WEEK
     Route: 065

REACTIONS (1)
  - Reversible cerebral vasoconstriction syndrome [Recovered/Resolved]
